FAERS Safety Report 4838378-7 (Version None)
Quarter: 2005Q4

REPORT INFORMATION
  Report Type: 
  Country: None (occurrence: None)
  Receive Date: 20051123
  Receipt Date: 20051114
  Transmission Date: 20060501
  Serious: Yes (Other)
  Sender: FDA-Public Use
  Company Number: 2005156079

PATIENT
  Age: 61 Year
  Sex: Female

DRUGS (4)
  1. NORVASC [Suspect]
     Indication: HYPERTENSION
  2. HYDROCHLOROTHIAZIDE [Concomitant]
  3. SYNTHROID [Concomitant]
  4. DIOVANE (VALSARTAN) [Concomitant]

REACTIONS (5)
  - BODY HEIGHT DECREASED [None]
  - CHEST PAIN [None]
  - DYSSTASIA [None]
  - PAIN IN EXTREMITY [None]
  - WEIGHT FLUCTUATION [None]
